FAERS Safety Report 5688897-9 (Version None)
Quarter: 2008Q1

REPORT INFORMATION
  Report Type: 
  Country: None (occurrence: None)
  Receive Date: 20080331
  Receipt Date: 20080325
  Transmission Date: 20080703
  Serious: Yes (Other)
  Sender: FDA-Public Use
  Company Number: US-JNJFOC-20080305908

PATIENT
  Sex: Female
  Weight: 58.97 kg

DRUGS (2)
  1. REMICADE [Suspect]
     Indication: CROHN'S DISEASE
     Dosage: NUMBER OF YEARS
     Route: 042
  2. OTHER MEDICATION [Concomitant]

REACTIONS (1)
  - LUNG NEOPLASM [None]
